FAERS Safety Report 13297431 (Version 1)
Quarter: 2017Q1

REPORT INFORMATION
  Report Type: Spontaneous
  Country: US (occurrence: US)
  Receive Date: 20170303
  Receipt Date: 20170303
  Transmission Date: 20170428
  Serious: Yes (Hospitalization)
  Sender: FDA-Public Use
  Company Number: None

PATIENT
  Age: 68 Year
  Sex: Female
  Weight: 72 kg

DRUGS (2)
  1. ERTAPENEM [Suspect]
     Active Substance: ERTAPENEM
     Indication: GANGRENE
     Dosage: 1  G GRAM(S)  DAILY INTRAVENOUS (NOT OTHERWISE SPECIFIED)
     Route: 042
     Dates: start: 20170221, end: 20170228
  2. ERTAPENEM [Suspect]
     Active Substance: ERTAPENEM
     Indication: CELLULITIS
     Dosage: 1  G GRAM(S)  DAILY INTRAVENOUS (NOT OTHERWISE SPECIFIED)
     Route: 042
     Dates: start: 20170221, end: 20170228

REACTIONS (5)
  - Toe amputation [None]
  - Hallucination [None]
  - Confusional state [None]
  - Encephalopathy [None]
  - Therapy cessation [None]

NARRATIVE: CASE EVENT DATE: 20170227
